FAERS Safety Report 9426785 (Version 1)
Quarter: 2013Q3

REPORT INFORMATION
  Report Type: Spontaneous
  Country: US (occurrence: US)
  Receive Date: 20130730
  Receipt Date: 20130730
  Transmission Date: 20140515
  Serious: No
  Sender: FDA-Public Use
  Company Number: US-SANOFI-AVENTIS-2012SA074352

PATIENT
  Age: 66 Year
  Sex: Female

DRUGS (1)
  1. ZOLPIDEM TARTRATE [Suspect]
     Indication: INSOMNIA
     Route: 048
     Dates: end: 201209

REACTIONS (6)
  - Eating disorder [Recovering/Resolving]
  - Dizziness [Recovering/Resolving]
  - Nausea [Recovering/Resolving]
  - Asthenia [Recovering/Resolving]
  - Fatigue [Recovering/Resolving]
  - Blood pressure increased [Recovering/Resolving]
